FAERS Safety Report 9626150 (Version 1)
Quarter: 2013Q4

REPORT INFORMATION
  Report Type: Spontaneous
  Country: US (occurrence: None)
  Receive Date: 20131015
  Receipt Date: 20131015
  Transmission Date: 20140711
  Serious: Yes (Hospitalization, Disabling)
  Sender: FDA-Public Use
  Company Number: None

PATIENT
  Age: 34 Year
  Sex: Male
  Weight: 82.56 kg

DRUGS (2)
  1. NYQUIL [Suspect]
     Indication: NASOPHARYNGITIS
     Route: 048
     Dates: start: 20130201, end: 20131004
  2. NYQUIL [Suspect]
     Indication: COUGH
     Route: 048
     Dates: start: 20130201, end: 20131004

REACTIONS (3)
  - Chest pain [None]
  - Hallucination [None]
  - Psychotic disorder [None]
